FAERS Safety Report 11514490 (Version 1)
Quarter: 2015Q3

REPORT INFORMATION
  Report Type: Spontaneous
  Country: JP (occurrence: JP)
  Receive Date: 20150916
  Receipt Date: 20150916
  Transmission Date: 20151125
  Serious: Yes (Hospitalization)
  Sender: FDA-Public Use
  Company Number: JP-GLAXOSMITHKLINE-JP2015JPN127662

PATIENT
  Age: 72 Year
  Sex: Female
  Weight: 43 kg

DRUGS (10)
  1. UNKNOWN DRUG [Concomitant]
     Active Substance: UNSPECIFIED INGREDIENT
  2. TRYPTANOL [Concomitant]
     Active Substance: AMITRIPTYLINE
  3. PREGABALIN. [Concomitant]
     Active Substance: PREGABALIN
     Dosage: 75 MG, UNK
  4. PAROXETINE [Concomitant]
     Active Substance: PAROXETINE\PAROXETINE HYDROCHLORIDE
     Dosage: 10 MG, UNK
  5. PROPRANOLOL HYDROCHLORIDE. [Concomitant]
     Active Substance: PROPRANOLOL HYDROCHLORIDE
  6. LOMERIZINE HYDROCHLORIDE [Concomitant]
     Active Substance: LOMERIZINE HYDROCHLORIDE
  7. AMERGE [Suspect]
     Active Substance: NARATRIPTAN HYDROCHLORIDE
     Dosage: 2.5 MG, BID
     Route: 048
  8. TOPIRAMATE. [Concomitant]
     Active Substance: TOPIRAMATE
  9. TRADITIONAL CHINESE DRUG [Concomitant]
     Dosage: 7.5 G, UNK
  10. VALPROATE SODIUM. [Concomitant]
     Active Substance: VALPROATE SODIUM

REACTIONS (1)
  - Medication overuse headache [Recovered/Resolved]
